FAERS Safety Report 11854559 (Version 1)
Quarter: 2015Q4

REPORT INFORMATION
  Report Type: Spontaneous
  Country: US (occurrence: US)
  Receive Date: 20151221
  Receipt Date: 20151221
  Transmission Date: 20160305
  Serious: Yes (Other)
  Sender: FDA-Public Use
  Company Number: US-BEH-2015056803

PATIENT
  Sex: Female
  Weight: 31 kg

DRUGS (10)
  1. LIDOCAINE/PRILOCAINE [Concomitant]
  2. EPIPEN [Concomitant]
     Active Substance: EPINEPHRINE
  3. SEPTRA [Concomitant]
     Active Substance: SULFAMETHOXAZOLE\TRIMETHOPRIM
  4. HIZENTRA [Suspect]
     Active Substance: HUMAN IMMUNOGLOBULIN G
     Route: 058
     Dates: start: 20121114
  5. FLONASE [Concomitant]
     Active Substance: FLUTICASONE PROPIONATE
  6. PRILOSEC [Concomitant]
     Active Substance: OMEPRAZOLE MAGNESIUM
  7. HIZENTRA [Suspect]
     Active Substance: HUMAN IMMUNOGLOBULIN G
     Route: 058
  8. ANAKIT [Concomitant]
  9. DIPHENHYDRAMINE. [Concomitant]
     Active Substance: DIPHENHYDRAMINE
  10. HIZENTRA [Suspect]
     Active Substance: HUMAN IMMUNOGLOBULIN G
     Indication: CEREBELLAR ATAXIA
     Route: 058

REACTIONS (1)
  - Pneumonia [Unknown]
